FAERS Safety Report 6756685-8 (Version None)
Quarter: 2010Q2

REPORT INFORMATION
  Report Type: 
  Country: None (occurrence: None)
  Receive Date: 20100604
  Receipt Date: 20100524
  Transmission Date: 20101027
  Serious: Yes (Hospitalization)
  Sender: FDA-Public Use
  Company Number: MX-WATSON-2010-07122

PATIENT
  Age: 74 Year
  Sex: Female

DRUGS (2)
  1. HYDRALAZINE (WATSON LABORATORIES) [Suspect]
     Indication: MYCOSIS FUNGOIDES
     Dosage: 182 MG, DAILY
     Dates: start: 20090101
  2. VALPROATE SODIUM [Suspect]
     Indication: MYCOSIS FUNGOIDES
     Dosage: 30 MG/KG DAILY

REACTIONS (3)
  - HYPERTENSION [None]
  - PARADOXICAL DRUG REACTION [None]
  - RENAL FAILURE ACUTE [None]
